FAERS Safety Report 14049766 (Version 1)
Quarter: 2017Q4

REPORT INFORMATION
  Report Type: Spontaneous
  Country: US (occurrence: US)
  Receive Date: 20171005
  Receipt Date: 20171005
  Transmission Date: 20180321
  Serious: Yes (Other)
  Sender: FDA-Public Use
  Company Number: US-PFIZER INC-2017425994

PATIENT

DRUGS (1)
  1. LYRICA [Suspect]
     Active Substance: PREGABALIN

REACTIONS (6)
  - Intracranial pressure increased [Unknown]
  - Malaise [Unknown]
  - Cerebral haemorrhage [Unknown]
  - Urticaria [Not Recovered/Not Resolved]
  - Nerve injury [Unknown]
  - Brain oedema [Unknown]

NARRATIVE: CASE EVENT DATE: 2017
